FAERS Safety Report 8583768-2 (Version None)
Quarter: 2012Q3

REPORT INFORMATION
  Report Type: 
  Country: None (occurrence: None)
  Receive Date: 20120810
  Receipt Date: 20120726
  Transmission Date: 20120928
  Serious: Yes (Other)
  Sender: FDA-Public Use
  Company Number: CO-009507513-1207COL011664

PATIENT

DRUGS (2)
  1. REBETOL [Suspect]
     Dosage: 100 MICROGRAM, UNK
  2. PEG-INTRON [Suspect]
     Indication: HEPATITIS C
     Dosage: 100 MICROGRAM, UNK
     Dates: start: 20120629

REACTIONS (2)
  - LEUKOPENIA [None]
  - NEUTROPENIA [None]
